FAERS Safety Report 11930708 (Version 5)
Quarter: 2016Q2

REPORT INFORMATION
  Report Type: Spontaneous
  Country: JP (occurrence: JP)
  Receive Date: 20160120
  Receipt Date: 20160531
  Transmission Date: 20160815
  Serious: Yes (Death, Other)
  Sender: FDA-Public Use
  Company Number: JP-PFIZER INC-2016021566

PATIENT
  Age: 21 Year
  Sex: Male

DRUGS (1)
  1. BOSULIF [Suspect]
     Active Substance: BOSUTINIB MONOHYDRATE
     Dosage: 200 MG, DAILY
     Route: 048
     Dates: start: 2015

REACTIONS (5)
  - Urine analysis abnormal [Fatal]
  - Diarrhoea [Unknown]
  - Multiple injuries [Fatal]
  - Abdominal pain [Unknown]
  - Fall [Unknown]

NARRATIVE: CASE EVENT DATE: 201601
